FAERS Safety Report 18782254 (Version 1)
Quarter: 2021Q1

REPORT INFORMATION
  Report Type: Spontaneous
  Country: US (occurrence: US)
  Receive Date: 20210125
  Receipt Date: 20210125
  Transmission Date: 20210419
  Serious: No
  Sender: FDA-Public Use
  Company Number: US-ALLERGAN-2001890US

PATIENT
  Sex: Female

DRUGS (1)
  1. RESTASIS [Suspect]
     Active Substance: CYCLOSPORINE
     Indication: DRY EYE
     Route: 065

REACTIONS (5)
  - Cough [Recovering/Resolving]
  - Malaise [Recovering/Resolving]
  - Upper-airway cough syndrome [Recovering/Resolving]
  - Immune system disorder [Recovering/Resolving]
  - Nasal congestion [Recovering/Resolving]
